FAERS Safety Report 5169079-6 (Version None)
Quarter: 2006Q4

REPORT INFORMATION
  Report Type: 
  Country: None (occurrence: None)
  Receive Date: 20061201
  Receipt Date: 20061120
  Transmission Date: 20070319
  Serious: Yes (Other)
  Sender: FDA-Public Use
  Company Number: 2006BI015375

PATIENT
  Age: 59 Year
  Sex: Female

DRUGS (8)
  1. AVONEX [Suspect]
     Indication: MULTIPLE SCLEROSIS
     Dosage: 30 UG;QW;IM
     Route: 030
     Dates: start: 20060110, end: 20060804
  2. PROVIGIL [Concomitant]
  3. DIOVAN [Concomitant]
  4. SIMVASTATIN [Concomitant]
  5. METROPROLOL [Concomitant]
  6. DECADRON [Concomitant]
  7. IRON [Concomitant]
  8. EMEND [Concomitant]

REACTIONS (1)
  - BREAST CANCER FEMALE [None]
